FAERS Safety Report 9496499 (Version 1)
Quarter: 2013Q3

REPORT INFORMATION
  Report Type: Report from Study
  Country: MX (occurrence: MX)
  Receive Date: 20130904
  Receipt Date: 20130904
  Transmission Date: 20140515
  Serious: Yes (Other)
  Sender: FDA-Public Use
  Company Number: PHHY2013MX096470

PATIENT
  Age: 85 Year
  Sex: Male

DRUGS (6)
  1. ONBREZ [Suspect]
     Indication: EMPHYSEMA
     Dosage: 300 UG, BID
  2. ONBREZ [Suspect]
     Indication: OFF LABEL USE
  3. SPIRIVA [Concomitant]
     Indication: EMPHYSEMA
     Dosage: UNK UKN, UNK
  4. OMEPRAZOLE [Concomitant]
     Dosage: UNK UKN, UNK
  5. LISOMUCIL TOSSE S. [Concomitant]
     Dosage: UNK UKN, UNK
  6. COMBIVENT [Concomitant]
     Indication: EMPHYSEMA
     Dosage: UNK UKN, UNK

REACTIONS (3)
  - Hiatus hernia [Not Recovered/Not Resolved]
  - Blood pressure increased [Unknown]
  - Drug prescribing error [Unknown]
